FAERS Safety Report 4766493-5 (Version None)
Quarter: 2005Q3

REPORT INFORMATION
  Report Type: 
  Country: None (occurrence: None)
  Receive Date: 20050909
  Receipt Date: 20050830
  Transmission Date: 20060218
  Serious: Yes (Hospitalization)
  Sender: FDA-Public Use
  Company Number: 2005109162

PATIENT
  Age: 21 Month
  Sex: Male
  Weight: 11 kg

DRUGS (6)
  1. UNASYN [Suspect]
     Indication: PYREXIA
     Dosage: SEE IMAGE
     Route: 042
     Dates: start: 20050323, end: 20050329
  2. UNASYN [Suspect]
     Indication: PYREXIA
     Dosage: SEE IMAGE
     Route: 042
     Dates: start: 20050721, end: 20050721
  3. UNASYN [Suspect]
     Indication: PYREXIA
     Dosage: SEE IMAGE
     Route: 042
     Dates: start: 20050722, end: 20050722
  4. DIAPP (DIAZEPAM) [Concomitant]
  5. SOLDEM 3A (CARBOHYDRATES NOS, POTASSIUM CHLORIDE, SODIUM LACTATE) [Concomitant]
  6. ANHIBA (PARACETAMOL) [Concomitant]

REACTIONS (4)
  - ASPARTATE AMINOTRANSFERASE INCREASED [None]
  - DRUG HYPERSENSITIVITY [None]
  - HAEMATEMESIS [None]
  - STRESS [None]
